FAERS Safety Report 6133814-0 (Version None)
Quarter: 2009Q1

REPORT INFORMATION
  Report Type: 
  Country: None (occurrence: None)
  Receive Date: 20090326
  Receipt Date: 20090322
  Transmission Date: 20090719
  Serious: Yes (Hospitalization, Other)
  Sender: FDA-Public Use
  Company Number: US-ELI_LILLY_AND_COMPANY-US200902001004

PATIENT
  Age: 67 Year
  Sex: Male

DRUGS (2)
  1. GEMZAR [Suspect]
     Indication: BLADDER CANCER
     Dosage: UNK, UNK
     Dates: start: 20090101
  2. CARBOPLATIN [Concomitant]
     Indication: BLADDER CANCER
     Dosage: UNK, UNK
     Dates: start: 20090101

REACTIONS (10)
  - ANAEMIA [None]
  - CHILLS [None]
  - DEHYDRATION [None]
  - DIZZINESS [None]
  - FATIGUE [None]
  - HEADACHE [None]
  - LETHARGY [None]
  - ORTHOSTATIC HYPOTENSION [None]
  - POLLAKIURIA [None]
  - URINARY TRACT INFECTION [None]
